FAERS Safety Report 9303074 (Version 1)
Quarter: 2013Q2

REPORT INFORMATION
  Report Type: Spontaneous
  Country: IT (occurrence: None)
  Receive Date: 20130516
  Receipt Date: 20130516
  Transmission Date: 20140414
  Serious: Yes (Other)
  Sender: FDA-Public Use
  Company Number: 1709678

PATIENT
  Age: 66 Year
  Sex: 0

DRUGS (1)
  1. OXALIPLATIN [Suspect]
     Indication: COLON CANCER
     Route: 042
     Dates: start: 20130430, end: 20130430

REACTIONS (5)
  - Abdominal pain upper [None]
  - Abdominal pain upper [None]
  - Nausea [None]
  - Tachypnoea [None]
  - Erythema [None]
